FAERS Safety Report 14967213 (Version 1)
Quarter: 2018Q2

REPORT INFORMATION
  Report Type: Spontaneous
  Country: US (occurrence: US)
  Receive Date: 20180604
  Receipt Date: 20180604
  Transmission Date: 20180711
  Serious: Yes (Death, Other)
  Sender: FDA-Public Use
  Company Number: US-CHEPLA-C20170867

PATIENT

DRUGS (2)
  1. AL-TRANS RETINOIC ACID (ATRA) [Suspect]
     Active Substance: TRETINOIN
     Indication: ACUTE PROMYELOCYTIC LEUKAEMIA
     Dosage: INDUCTION THERAPY: ATRA ALONE, ATRA WITH ATO, ATRA WITH ANTHRACYCLINES OR ATRA WITH CHEMOTHERAPY
  2. ATO (ARSENIC TRIOXIDE) [Suspect]
     Active Substance: ARSENIC TRIOXIDE
     Indication: ACUTE PROMYELOCYTIC LEUKAEMIA
     Dosage: INDUCTION THERAPY: ATRA WITH ATO

REACTIONS (6)
  - Neoplasm malignant [Fatal]
  - Infection [Unknown]
  - Acute promyelocytic leukaemia differentiation syndrome [Unknown]
  - Leukaemia recurrent [Fatal]
  - Multiple organ dysfunction syndrome [Fatal]
  - Haemorrhage [Unknown]
